FAERS Safety Report 7620144-0 (Version None)
Quarter: 2011Q3

REPORT INFORMATION
  Report Type: 
  Country: None (occurrence: None)
  Receive Date: 20110719
  Receipt Date: 20110715
  Transmission Date: 20111222
  Serious: No
  Sender: FDA-Public Use
  Company Number: US-B.I. PHARMACEUTICALS,INC./RIDGEFIELD-2011-BP-16235BP

PATIENT
  Sex: Male

DRUGS (8)
  1. AMLODIPINE [Concomitant]
     Indication: HYPERTENSION
  2. FUROSEMIDE [Concomitant]
     Indication: CARDIAC FAILURE CONGESTIVE
  3. ENALAPRIL MALEATE [Concomitant]
     Indication: HYPERTENSION
  4. PRADAXA [Suspect]
     Indication: ATRIAL FIBRILLATION
     Dosage: 300 MG
     Route: 048
     Dates: start: 20110618, end: 20110621
  5. PRADAXA [Suspect]
     Indication: ANTICOAGULANT THERAPY
  6. FLUOXETINE [Concomitant]
     Indication: DEPRESSION
  7. METOPROLOL TARTRATE [Concomitant]
  8. LANOXIN [Concomitant]
     Indication: ATRIAL FIBRILLATION

REACTIONS (6)
  - NAUSEA [None]
  - HEADACHE [None]
  - GASTROINTESTINAL PAIN [None]
  - DYSPEPSIA [None]
  - INSOMNIA [None]
  - EATING DISORDER [None]
